FAERS Safety Report 9681901 (Version 4)
Quarter: 2014Q2

REPORT INFORMATION
  Report Type: Report from Study
  Country: IT (occurrence: IT)
  Receive Date: 20131111
  Receipt Date: 20140414
  Transmission Date: 20141212
  Serious: Yes (Death, Other)
  Sender: FDA-Public Use
  Company Number: IT-CELGENEUS-083-C4047-13100486

PATIENT
  Age: 76 Year
  Sex: Female
  Weight: 68 kg

DRUGS (34)
  1. CC-4047 [Suspect]
     Indication: PLASMA CELL MYELOMA
     Dosage: 4 MILLIGRAM
     Route: 048
     Dates: start: 20130529, end: 20130618
  2. CC-4047 [Suspect]
     Dosage: 4 MILLIGRAM
     Route: 048
     Dates: start: 20130928
  3. CC-4047 [Suspect]
     Dosage: 4 MILLIGRAM
     Route: 048
     Dates: start: 20131016, end: 20131101
  4. DEXAMETHASONE [Suspect]
     Indication: PLASMA CELL MYELOMA
     Dosage: 40 MILLIGRAM
     Route: 065
     Dates: start: 20130529, end: 20130619
  5. DEXAMETHASONE [Suspect]
     Dosage: 20 MILLIGRAM
     Route: 065
     Dates: start: 20130918
  6. DEXAMETHASONE [Suspect]
     Route: 065
     Dates: start: 20131016, end: 20131030
  7. DEXAMETHASONE [Suspect]
     Dosage: 20 MILLIGRAM
     Route: 048
     Dates: start: 20120329, end: 20130214
  8. DEXAMETHASONE [Suspect]
     Dosage: 20 MILLIGRAM
     Route: 048
     Dates: start: 20130311, end: 20130506
  9. LUCEN [Concomitant]
     Indication: PROPHYLAXIS
     Dosage: 80 MILLIGRAM
     Route: 048
     Dates: start: 20100727
  10. RIOPAN [Concomitant]
     Indication: PROPHYLAXIS
     Dosage: 3 TABLESPOON
     Route: 048
     Dates: start: 20130522
  11. ACICLOVIR [Concomitant]
     Indication: INFECTION PROPHYLAXIS
     Dosage: 800 MILLIGRAM
     Route: 048
     Dates: start: 20130222
  12. INSULIN [Concomitant]
     Indication: DIABETES MELLITUS
     Route: 058
     Dates: start: 20111007
  13. LAMIVUDINE [Concomitant]
     Indication: INFECTION PROPHYLAXIS
     Dosage: 100 MILLIGRAM
     Route: 048
     Dates: start: 20130529
  14. ONDANSETRON [Concomitant]
     Indication: NAUSEA
     Route: 048
     Dates: start: 20130529
  15. URSODEOXYCHOLIC ACID [Concomitant]
     Indication: PROPHYLAXIS
     Dosage: 450 MILLIGRAM
     Route: 048
     Dates: start: 20130626, end: 20131016
  16. SERTRALINE [Concomitant]
     Indication: PROPHYLAXIS
     Dosage: 25 MILLIGRAM
     Route: 048
     Dates: start: 20130710
  17. MOVICOL [Concomitant]
     Indication: CONSTIPATION PROPHYLAXIS
     Dosage: 11.8 GRAM
     Route: 048
     Dates: start: 20130717
  18. LORMETAZEPAM [Concomitant]
     Indication: PROPHYLAXIS
     Route: 048
     Dates: start: 20130724
  19. DEPALGOS [Concomitant]
     Indication: BONE PAIN
     Route: 048
     Dates: start: 20130703
  20. CEFPODOXIME [Concomitant]
     Indication: INFECTION
     Dosage: 400 MILLIGRAM
     Route: 048
     Dates: start: 20130916, end: 20130924
  21. NIVESTIM [Concomitant]
     Indication: NEUTROPENIA
     Dosage: 300 MICROGRAM
     Route: 058
     Dates: start: 20130904, end: 20130904
  22. NIVESTIM [Concomitant]
     Indication: PROPHYLAXIS
     Route: 058
     Dates: start: 20130910, end: 20131015
  23. NIVESTIM [Concomitant]
     Dosage: 300 MICROGRAM
     Route: 058
     Dates: start: 20131029, end: 20131029
  24. CIPROFLOXACIN [Concomitant]
     Indication: INFECTION PROPHYLAXIS
     Dosage: 1000 MILLIGRAM
     Route: 048
     Dates: start: 20131016, end: 20131023
  25. TARGIN [Concomitant]
     Indication: BONE PAIN
     Route: 048
     Dates: start: 20130710
  26. RUSCOROID [Concomitant]
     Indication: PROPHYLAXIS
     Route: 061
     Dates: start: 20130612
  27. DENTOSAN [Concomitant]
     Indication: INFECTION PROPHYLAXIS
     Route: 002
     Dates: start: 20130522
  28. MYCOSTATIN [Concomitant]
     Indication: INFECTION PROPHYLAXIS
     Route: 048
     Dates: start: 20130522
  29. CLISMA FLEET [Concomitant]
     Indication: CONSTIPATION PROPHYLAXIS
     Dosage: BOTTLE
     Route: 054
     Dates: start: 20130612
  30. LEVOSULPRIDE [Concomitant]
     Indication: PROPHYLAXIS
     Dosage: 60 MILLIGRAM
     Route: 048
     Dates: start: 20130821
  31. FUROSEMIDE [Concomitant]
     Indication: PROPHYLAXIS
     Dosage: 50 MILLIGRAM
     Route: 048
     Dates: start: 20130703
  32. FUROSEMIDE [Concomitant]
     Route: 048
     Dates: start: 20130703, end: 20131030
  33. FUROSEMIDE [Concomitant]
     Route: 048
     Dates: start: 20131030
  34. BETADINE [Concomitant]
     Indication: INFECTION PROPHYLAXIS
     Dosage: AS NEEDED
     Route: 067
     Dates: start: 20130612

REACTIONS (2)
  - Pulmonary embolism [Fatal]
  - Atrial fibrillation [Not Recovered/Not Resolved]
